APPROVED DRUG PRODUCT: GABAPENTIN
Active Ingredient: GABAPENTIN
Strength: 800MG
Dosage Form/Route: TABLET;ORAL
Application: A090335 | Product #002
Applicant: PHARMOBEDIENT CONSULTING LLC
Approved: Jun 1, 2010 | RLD: No | RS: No | Type: DISCN